FAERS Safety Report 9435120 (Version 2)
Quarter: 2014Q2

REPORT INFORMATION
  Report Type: Spontaneous
  Country: US (occurrence: US)
  Receive Date: 20130801
  Receipt Date: 20140609
  Transmission Date: 20141212
  Serious: Yes (Other)
  Sender: FDA-Public Use
  Company Number: US-PFIZER INC-2013221043

PATIENT
  Age: 48 Year
  Sex: Female
  Weight: 81 kg

DRUGS (9)
  1. LIPITOR [Suspect]
     Indication: LOW DENSITY LIPOPROTEIN INCREASED
     Dosage: 10 MG, DAILY
     Route: 048
     Dates: start: 20060614, end: 20111213
  2. LIPITOR [Suspect]
     Indication: CARDIOVASCULAR EVENT PROPHYLAXIS
  3. LIPITOR [Suspect]
     Indication: BLOOD CHOLESTEROL INCREASED
  4. LEVOTHYROXINE [Concomitant]
     Indication: THYROID DISORDER
     Dosage: 150 UG, DAILY
     Dates: start: 200201
  5. CELEXA [Concomitant]
     Indication: DEPRESSION
     Dosage: 20 MG, DAILY
     Dates: start: 20040831
  6. SEROQUEL [Concomitant]
     Indication: DEPRESSION
     Dosage: 100 MG, DAILY
     Dates: start: 200607
  7. IBUPROFEN [Concomitant]
     Indication: MUSCULOSKELETAL PAIN
     Dosage: 600 MG, 3X/DAY
     Dates: start: 200609
  8. IBUPROFEN [Concomitant]
     Indication: PAIN IN EXTREMITY
  9. ABILIFY [Concomitant]
     Indication: DEPRESSION
     Dosage: 5 MG, DAILY
     Dates: start: 200902, end: 201205

REACTIONS (1)
  - Type 2 diabetes mellitus [Not Recovered/Not Resolved]
